FAERS Safety Report 8478969-8 (Version None)
Quarter: 2012Q2

REPORT INFORMATION
  Report Type: 
  Country: None (occurrence: None)
  Receive Date: 20120629
  Receipt Date: 20120619
  Transmission Date: 20120825
  Serious: Yes (Hospitalization, Other)
  Sender: FDA-Public Use
  Company Number: US-MYLANLABS-2012S1013123

PATIENT
  Sex: Female

DRUGS (28)
  1. GLUCOPHAGE [Concomitant]
  2. ASPIRIN [Concomitant]
  3. AMBIEN [Concomitant]
  4. ENALAPRIL MALEATE [Concomitant]
  5. FUROSEMIDE [Concomitant]
  6. VASOTEC [Concomitant]
  7. MS CONTIN [Concomitant]
  8. ULTRAM [Concomitant]
     Dosage: PRN
  9. FLEXERIL [Concomitant]
  10. COUMADIN [Concomitant]
  11. LEVAQUIN [Concomitant]
  12. PHENERGAN HCL [Concomitant]
  13. CEPHALEXIN [Concomitant]
  14. DIGOXIN [Suspect]
     Route: 048
     Dates: start: 20080316, end: 20080710
  15. COREG [Concomitant]
  16. OXYCONTIN [Concomitant]
  17. NITROGLYCERIN [Concomitant]
  18. VALIUM [Concomitant]
  19. BENICAR [Concomitant]
  20. NEURONTIN [Concomitant]
  21. MIRALAX /00754501/ [Concomitant]
     Dosage: 17 GRAINS
  22. SPIRONOLACTONE [Concomitant]
  23. PREVACID [Concomitant]
  24. PROTONIX [Concomitant]
  25. ZOFRAN [Concomitant]
  26. REGLAN [Concomitant]
  27. HYDROCHLOROTHIAZIDE [Concomitant]
  28. PERCOCET [Concomitant]
     Dosage: 5/325MG

REACTIONS (52)
  - PANCREATITIS [None]
  - PULMONARY HYPERTENSION [None]
  - ANXIETY [None]
  - DYSPNOEA EXERTIONAL [None]
  - FLUID RETENTION [None]
  - CARDIAC MURMUR [None]
  - MUSCLE STRAIN [None]
  - OROPHARYNGEAL PAIN [None]
  - CARDIOMYOPATHY [None]
  - BACK PAIN [None]
  - CONJUNCTIVITIS [None]
  - COUGH [None]
  - DIZZINESS [None]
  - DYSPHAGIA [None]
  - MITRAL VALVE INCOMPETENCE [None]
  - OEDEMA PERIPHERAL [None]
  - PAIN [None]
  - INSOMNIA [None]
  - ATELECTASIS [None]
  - DECREASED APPETITE [None]
  - CHEST PAIN [None]
  - ECHOCARDIOGRAM ABNORMAL [None]
  - NUCLEAR MAGNETIC RESONANCE IMAGING ABNORMAL [None]
  - NAUSEA [None]
  - WEIGHT INCREASED [None]
  - DEPRESSION [None]
  - HEADACHE [None]
  - MUSCLE SPASMS [None]
  - DYSPNOEA PAROXYSMAL NOCTURNAL [None]
  - URINARY TRACT INFECTION [None]
  - CARDIAC VALVE DISEASE [None]
  - ABDOMINAL DISTENSION [None]
  - DYSPEPSIA [None]
  - LABORATORY TEST ABNORMAL [None]
  - PANNICULITIS [None]
  - NEUROPATHY PERIPHERAL [None]
  - ULTRASOUND ABDOMEN ABNORMAL [None]
  - ABNORMAL LOSS OF WEIGHT [None]
  - RENAL FAILURE ACUTE [None]
  - CARDIAC FAILURE CONGESTIVE [None]
  - PLEURAL EFFUSION [None]
  - VENTRICULAR TACHYCARDIA [None]
  - GAIT DISTURBANCE [None]
  - FATIGUE [None]
  - ORTHOPNOEA [None]
  - CHEST DISCOMFORT [None]
  - ABDOMINAL PAIN [None]
  - LEFT VENTRICULAR HYPERTROPHY [None]
  - ELECTROCARDIOGRAM ABNORMAL [None]
  - PAIN IN EXTREMITY [None]
  - NOCTURIA [None]
  - VOMITING [None]
